FAERS Safety Report 18205034 (Version 1)
Quarter: 2020Q3

REPORT INFORMATION
  Report Type: Other
  Country: CA (occurrence: CA)
  Receive Date: 20200827
  Receipt Date: 20200827
  Transmission Date: 20201103
  Serious: Yes (Hospitalization)
  Sender: FDA-Public Use
  Company Number: CA-CELLTRION INC.-2020CA025452

PATIENT

DRUGS (9)
  1. APO?PREDNISONE [Suspect]
     Active Substance: PREDNISONE
     Indication: ORGANISING PNEUMONIA
     Dosage: 1.0 MG/KG
     Route: 065
  2. PROCYTOX [Suspect]
     Active Substance: CYCLOPHOSPHAMIDE
     Indication: BREAST CANCER
     Route: 065
  3. PREDNISONE. [Suspect]
     Active Substance: PREDNISONE
     Indication: ORGANISING PNEUMONIA
     Dosage: 1.0 MG/KG
     Route: 065
  4. TRASTUZUMAB (UNKNOWN) [Suspect]
     Active Substance: TRASTUZUMAB
     Indication: BREAST CANCER
     Dosage: UNK
     Route: 065
  5. MYCOPHENOLATE MOFETIL. [Suspect]
     Active Substance: MYCOPHENOLATE MOFETIL
     Indication: ORGANISING PNEUMONIA
     Route: 065
  6. CYCLOPHOSPHAMIDE. [Suspect]
     Active Substance: CYCLOPHOSPHAMIDE
     Indication: BREAST CANCER
     Route: 065
  7. PREDNISONE. [Suspect]
     Active Substance: PREDNISONE
     Indication: ORGANISING PNEUMONIA
     Dosage: 12.5 MILLIGRAM 1 EVERY 1 DAY
     Route: 065
  8. DOCETAXEL. [Suspect]
     Active Substance: DOCETAXEL
     Indication: BREAST CANCER
     Route: 042
  9. APO?PREDNISONE [Suspect]
     Active Substance: PREDNISONE
     Dosage: 12.5 MILLIGRAM 1 EVERY 24 HOURS
     Route: 048

REACTIONS (11)
  - Product use in unapproved indication [Unknown]
  - Biopsy lung abnormal [Unknown]
  - Pulmonary oedema [Unknown]
  - Organising pneumonia [Unknown]
  - Product use issue [Unknown]
  - Bronchial polyp [Unknown]
  - Computerised tomogram thorax abnormal [Unknown]
  - Multifocal micronodular pneumocyte hyperplasia [Unknown]
  - Respiratory failure [Unknown]
  - Therapeutic response decreased [Unknown]
  - Hypoxia [Unknown]
